FAERS Safety Report 20219504 (Version 3)
Quarter: 2022Q1

REPORT INFORMATION
  Report Type: Spontaneous
  Country: JP (occurrence: JP)
  Receive Date: 20211222
  Receipt Date: 20220210
  Transmission Date: 20220424
  Serious: Yes (Hospitalization)
  Sender: FDA-Public Use
  Company Number: JP-Eisai Medical Research-EC-2021-105144

PATIENT
  Age: 65 Year
  Sex: Male
  Weight: 80 kg

DRUGS (2)
  1. LENVIMA [Suspect]
     Active Substance: LENVATINIB
     Indication: Malignant neoplasm of thymus
     Route: 048
     Dates: start: 20210907, end: 20211118
  2. LENVIMA [Suspect]
     Active Substance: LENVATINIB
     Route: 050
     Dates: start: 20211126

REACTIONS (1)
  - Atelectasis [Recovered/Resolved]

NARRATIVE: CASE EVENT DATE: 20211124
